FAERS Safety Report 18120984 (Version 3)
Quarter: 2020Q3

REPORT INFORMATION
  Report Type: Report from Study
  Country: GB (occurrence: GB)
  Receive Date: 20200806
  Receipt Date: 20200824
  Transmission Date: 20201103
  Serious: Yes (Hospitalization)
  Sender: FDA-Public Use
  Company Number: GB-JNJFOC-20200736544

PATIENT
  Sex: Male

DRUGS (5)
  1. STELARA [Suspect]
     Active Substance: USTEKINUMAB
     Indication: PSORIASIS
     Route: 058
     Dates: start: 20161127
  2. ALLOPURINOL. [Concomitant]
     Active Substance: ALLOPURINOL
  3. STATIN                             /00036501/ [Concomitant]
     Active Substance: NYSTATIN
  4. CARBOCISTEINE [Concomitant]
     Active Substance: CARBOCYSTEINE
  5. STELARA [Suspect]
     Active Substance: USTEKINUMAB

REACTIONS (8)
  - Headache [Unknown]
  - Balance disorder [Unknown]
  - Pneumonia [Unknown]
  - Therapeutic response decreased [Unknown]
  - Fibromyalgia [Unknown]
  - Chest discomfort [Unknown]
  - Product dose omission issue [Unknown]
  - Arthralgia [Unknown]
